FAERS Safety Report 7745301-4 (Version None)
Quarter: 2011Q3

REPORT INFORMATION
  Report Type: 
  Country: None (occurrence: None)
  Receive Date: 20110819
  Receipt Date: 20110503
  Transmission Date: 20111222
  Serious: No
  Sender: FDA-Public Use
  Company Number: 023534

PATIENT
  Sex: Male

DRUGS (3)
  1. LACOSAMIDE [Suspect]
     Indication: CONVULSION
     Dosage: (DOWNTITRATION BY 100MG WEEKLY)
     Dates: start: 20101201
  2. LACOSAMIDE [Suspect]
     Indication: CONVULSION
     Dosage: (DOWNTITRATION BY 100MG WEEKLY)
     Dates: start: 20110301, end: 20110301
  3. INSULIN [Concomitant]

REACTIONS (1)
  - DIABETES MELLITUS INADEQUATE CONTROL [None]
